FAERS Safety Report 7950223-X (Version None)
Quarter: 2011Q4

REPORT INFORMATION
  Report Type: 
  Country: None (occurrence: None)
  Receive Date: 20111130
  Receipt Date: 20111123
  Transmission Date: 20120403
  Serious: Yes (Other)
  Sender: FDA-Public Use
  Company Number: US-TEVA-310827USA

PATIENT
  Sex: Female
  Weight: 70.37 kg

DRUGS (1)
  1. PARAGARD T 380A [Suspect]
     Indication: CONTRACEPTION
     Route: 015
     Dates: start: 20111102, end: 20111119

REACTIONS (3)
  - ABDOMINAL PAIN UPPER [None]
  - DEVICE EXPULSION [None]
  - COLITIS [None]
